FAERS Safety Report 9803193 (Version 1)
Quarter: 2014Q1

REPORT INFORMATION
  Report Type: Spontaneous
  Country: US (occurrence: US)
  Receive Date: 20140108
  Receipt Date: 20140108
  Transmission Date: 20141002
  Serious: No
  Sender: FDA-Public Use
  Company Number: US-PFIZER INC-2014001638

PATIENT
  Age: 52 Year
  Sex: Female

DRUGS (1)
  1. SOMAVERT [Suspect]
     Dosage: 10 MG, 7 DAYS A WEEK
     Dates: start: 20130813

REACTIONS (2)
  - Contusion [Unknown]
  - Fatigue [Unknown]
